FAERS Safety Report 7672134-X (Version None)
Quarter: 2011Q3

REPORT INFORMATION
  Report Type: 
  Country: None (occurrence: None)
  Receive Date: 20110809
  Receipt Date: 20110804
  Transmission Date: 20111222
  Serious: Yes (Other)
  Sender: FDA-Public Use
  Company Number: FR-PFIZER INC-2011178276

PATIENT
  Age: 55 Year
  Sex: Female

DRUGS (4)
  1. TEGRETOL [Suspect]
     Dosage: 150 MG PER DAY
     Route: 048
  2. PROPRANOLOL [Concomitant]
     Dosage: 160 MG
  3. LYRICA [Suspect]
     Dosage: 50 MG DAILY
     Route: 048
     Dates: start: 20110603
  4. CLONAZEPAM [Suspect]
     Dosage: 1 DF, 3X/DAY
     Route: 048

REACTIONS (5)
  - SEDATION [None]
  - HYPOKINESIA [None]
  - APATHY [None]
  - ASTHENIA [None]
  - IMPAIRED DRIVING ABILITY [None]
